FAERS Safety Report 17930990 (Version 1)
Quarter: 2020Q2

REPORT INFORMATION
  Report Type: Spontaneous
  Country: CN (occurrence: CN)
  Receive Date: 20200623
  Receipt Date: 20200623
  Transmission Date: 20200714
  Serious: Yes (Hospitalization)
  Sender: FDA-Public Use
  Company Number: CN-PFIZER INC-2020239977

PATIENT
  Age: 46 Year
  Sex: Female
  Weight: 60 kg

DRUGS (1)
  1. CELECOXIB. [Suspect]
     Active Substance: CELECOXIB
     Indication: INTERVERTEBRAL DISC PROTRUSION
     Dosage: 0.2 G, 2X/DAY
     Route: 048
     Dates: start: 20200606, end: 20200613

REACTIONS (3)
  - Pruritus [Recovering/Resolving]
  - Erythema [Recovered/Resolved]
  - Papule [Recovering/Resolving]

NARRATIVE: CASE EVENT DATE: 20200614
